APPROVED DRUG PRODUCT: DIPHENOXYLATE HYDROCHLORIDE AND ATROPINE SULFATE
Active Ingredient: ATROPINE SULFATE; DIPHENOXYLATE HYDROCHLORIDE
Strength: 0.025MG;2.5MG
Dosage Form/Route: TABLET;ORAL
Application: A087765 | Product #001
Applicant: HIKMA PHARMACEUTICALS LLC
Approved: Mar 15, 1982 | RLD: No | RS: No | Type: DISCN